FAERS Safety Report 13489738 (Version 2)
Quarter: 2017Q2

REPORT INFORMATION
  Report Type: Spontaneous
  Country: IT (occurrence: IT)
  Receive Date: 20170427
  Receipt Date: 20170605
  Transmission Date: 20170830
  Serious: Yes (Hospitalization)
  Sender: FDA-Public Use
  Company Number: IT-TEVA-761812ACC

PATIENT
  Age: 45 Year
  Sex: Male

DRUGS (3)
  1. BLEOMYCIN SULPHATE [Suspect]
     Active Substance: BLEOMYCIN SULFATE
     Indication: SEMINOMA
     Route: 065
  2. ETOPOSIDE. [Suspect]
     Active Substance: ETOPOSIDE
     Indication: SEMINOMA
     Route: 065
  3. CISPLATIN. [Suspect]
     Active Substance: CISPLATIN
     Indication: SEMINOMA
     Route: 065

REACTIONS (12)
  - Febrile neutropenia [Recovering/Resolving]
  - Haematemesis [Recovering/Resolving]
  - Mucosal inflammation [Recovering/Resolving]
  - Anaemia [Recovering/Resolving]
  - Intestinal obstruction [Recovering/Resolving]
  - Rectal haemorrhage [Recovering/Resolving]
  - Gastrointestinal ulcer haemorrhage [Recovering/Resolving]
  - Thrombocytopenia [Recovering/Resolving]
  - Palmar-plantar erythrodysaesthesia syndrome [Recovering/Resolving]
  - Melaena [Recovering/Resolving]
  - Gastritis erosive [Recovering/Resolving]
  - Erosive duodenitis [Recovering/Resolving]
